FAERS Safety Report 8540293-2 (Version None)
Quarter: 2012Q3

REPORT INFORMATION
  Report Type: 
  Country: None (occurrence: None)
  Receive Date: 20120726
  Receipt Date: 20120613
  Transmission Date: 20120928
  Serious: Yes (Death)
  Sender: FDA-Public Use
  Company Number: DE-ROCHE-1091862

PATIENT
  Sex: Male
  Weight: 67.5 kg

DRUGS (1)
  1. MIRCERA [Suspect]
     Indication: NEPHROGENIC ANAEMIA
     Dosage: RECENT DOSE PRIOR TO SAE ON 10/APR/2012
     Route: 040
     Dates: start: 20120306

REACTIONS (1)
  - SUDDEN CARDIAC DEATH [None]
